FAERS Safety Report 11009495 (Version 1)
Quarter: 2015Q2

REPORT INFORMATION
  Report Type: Spontaneous
  Country: DE (occurrence: None)
  Receive Date: 20150408
  Receipt Date: 20150408
  Transmission Date: 20150821
  Serious: Yes (Death)
  Sender: FDA-Public Use
  Company Number: NSR_02038_2015

PATIENT
  Age: 27 Year
  Sex: Male

DRUGS (12)
  1. HYDROXYZINE (HYDROXYZINE) [Suspect]
     Active Substance: HYDROXYZINE HYDROCHLORIDE
     Indication: PRODUCT USED FOR UNKNOWN INDICATION
     Dosage: (NOT OTHERWISE SPECIFIED??DF
     Route: 042
  2. MORPHINE (MORPHINE) [Suspect]
     Active Substance: MORPHINE
     Indication: PRODUCT USED FOR UNKNOWN INDICATION
     Dosage: DF?(NOT OTHERWISE SPECIFIED)
     Route: 042
  3. LEVAMISOLE (LEVAMISOLE) [Suspect]
     Active Substance: LEVAMISOLE
     Indication: PRODUCT USED FOR UNKNOWN INDICATION
     Dosage: DF?(NOT OTHERWISE SPECIFIED)
     Route: 042
  4. MONOACETYLMORPHINE [Suspect]
     Active Substance: 6-ACETYLMORPHINE
     Indication: PRODUCT USED FOR UNKNOWN INDICATION
     Dosage: DF?(NOT OTHERWISE SPECIFIED)
     Route: 042
  5. COTININE [Suspect]
     Active Substance: COTININE
     Indication: PRODUCT USED FOR UNKNOWN INDICATION
     Dosage: DF?(NOT OTHERWISE SPECIFIED)
     Route: 042
  6. THEOPHYLLINE (THEOPHYLLINE) [Suspect]
     Active Substance: THEOPHYLLINE ANHYDROUS
     Indication: PRODUCT USED FOR UNKNOWN INDICATION
     Dosage: DF ?(NOT OTHERWISE SPECIFIED)
     Route: 042
  7. BENZOYLECGONINE (BENZOYLECGONINE) [Suspect]
     Active Substance: BENZOYLECGONINE
     Indication: PRODUCT USED FOR UNKNOWN INDICATION
     Dosage: DF?(NOT OTHERWISE SPECIFIED)
     Route: 042
  8. CAFFEINE (CAFFEINE) [Suspect]
     Active Substance: CAFFEINE
     Indication: PRODUCT USED FOR UNKNOWN INDICATION
     Dosage: DF (NOT OTHERWISE SPECIFIED)
     Route: 042
  9. COCAINE (COCAINE) [Suspect]
     Active Substance: COCAINE
     Indication: PRODUCT USED FOR UNKNOWN INDICATION
     Dosage: DF?(NOT OTHERWISE SPECIFIED)
     Route: 042
  10. THEOBROMINE (THEOBROMINE) [Suspect]
     Active Substance: THEOBROMINE
     Indication: PRODUCT USED FOR UNKNOWN INDICATION
     Dosage: DF?(NOT OTHERWISE SPECIFIED)
     Route: 042
  11. DILTIAZEM (DILTIAZEM) [Suspect]
     Active Substance: DILTIAZEM
     Indication: PRODUCT USED FOR UNKNOWN INDICATION
     Dosage: DF?(NOT OTHERWISE SPECIFIED)
     Route: 042
  12. CODEINE [Suspect]
     Active Substance: CODEINE
     Indication: PRODUCT USED FOR UNKNOWN INDICATION
     Dosage: DF?(NOT OTHERWISE SPECIFIED)
     Route: 042

REACTIONS (10)
  - Intentional overdose [None]
  - Hearing impaired [None]
  - Incorrect route of drug administration [None]
  - Toxicity to various agents [None]
  - Accidental death [None]
  - Vomiting [None]
  - Needle track marks [None]
  - Drug abuse [None]
  - Muscle spasms [None]
  - Delirium [None]
